FAERS Safety Report 5341090-1 (Version None)
Quarter: 2007Q2

REPORT INFORMATION
  Report Type: 
  Country: None (occurrence: None)
  Receive Date: 20070531
  Receipt Date: 20070522
  Transmission Date: 20071010
  Serious: Yes (Other)
  Sender: FDA-Public Use
  Company Number: FR-AMGEN-UK212400

PATIENT
  Age: 66 Year
  Sex: Male

DRUGS (7)
  1. ARANESP [Suspect]
     Indication: ANAEMIA
     Route: 058
     Dates: start: 20070129, end: 20070220
  2. METHOTREXATE SODIUM [Concomitant]
     Dates: start: 20070213
  3. VINBLASTINE SULFATE [Concomitant]
     Dates: start: 20070213
  4. ADRIAMYCIN PFS [Concomitant]
     Dates: start: 20070313
  5. CISPLATIN [Concomitant]
  6. TRANDOLAPRIL [Concomitant]
     Dates: start: 20030101
  7. PLAVIX [Concomitant]

REACTIONS (2)
  - OVERDOSE [None]
  - THROMBOCYTOPENIA [None]
